FAERS Safety Report 4779117-8 (Version None)
Quarter: 2005Q3

REPORT INFORMATION
  Report Type: 
  Country: None (occurrence: None)
  Receive Date: 20050926
  Receipt Date: 20050919
  Transmission Date: 20060218
  Serious: Yes (Hospitalization)
  Sender: FDA-Public Use
  Company Number: DE-MERCK-0509DEU00115

PATIENT
  Age: 69 Year
  Sex: Male

DRUGS (5)
  1. ZOCOR [Suspect]
     Indication: HYPERCHOLESTEROLAEMIA
     Route: 048
     Dates: start: 20040101, end: 20050917
  2. FLUPIRTINE MALEATE [Concomitant]
     Route: 065
  3. TRAMADOL HYDROCHLORIDE [Concomitant]
     Route: 065
  4. THEOPHYLLINE [Concomitant]
     Route: 065
  5. DICLOFENAC SODIUM [Concomitant]
     Route: 065

REACTIONS (2)
  - MYALGIA [None]
  - WEIGHT DECREASED [None]
